FAERS Safety Report 9112912 (Version 3)
Quarter: 2013Q2

REPORT INFORMATION
  Report Type: Spontaneous
  Country: JP (occurrence: JP)
  Receive Date: 20130211
  Receipt Date: 20130402
  Transmission Date: 20140414
  Serious: Yes (Death, Life-Threatening, Other)
  Sender: FDA-Public Use
  Company Number: JP-PFIZER INC-2013053099

PATIENT
  Age: 89 Year
  Sex: Male
  Weight: 35 kg

DRUGS (7)
  1. ZOSYN [Suspect]
     Indication: PNEUMONIA ASPIRATION
     Dosage: 4.5 G, 3X/DAY
     Route: 041
     Dates: start: 20121122, end: 20121126
  2. GASPORT [Concomitant]
     Indication: DUODENAL ULCER
     Dosage: 40 MG/DAY
     Route: 042
     Dates: start: 20121122, end: 20121127
  3. TAKEPRON [Concomitant]
     Indication: DUODENAL ULCER
     Dosage: 30 MG/DAY
     Route: 048
     Dates: start: 20121126, end: 20121203
  4. ENTERONON R [Concomitant]
     Indication: ENTEROCOLITIS
     Dosage: 2 G/DAY
     Route: 048
     Dates: start: 20121126, end: 20121203
  5. MAG-LAX [Concomitant]
     Indication: CONSTIPATION
     Dosage: 660 MG/DAY
     Route: 048
     Dates: start: 20121126, end: 20121203
  6. KOLANTYL [Concomitant]
     Indication: GASTRITIS
     Dosage: 1.32G/DAY
     Route: 048
     Dates: start: 20121126, end: 20121203
  7. NICORANTA [Concomitant]
     Indication: MYOCARDIAL ISCHAEMIA
     Dosage: 10 MG/DAY
     Route: 048
     Dates: start: 20121126, end: 20121203

REACTIONS (2)
  - Overdose [Fatal]
  - Agranulocytosis [Fatal]
